FAERS Safety Report 4487955-4 (Version None)
Quarter: 2004Q4

REPORT INFORMATION
  Report Type: 
  Country: None (occurrence: None)
  Receive Date: 20041028
  Receipt Date: 20041007
  Transmission Date: 20050328
  Serious: Yes (Hospitalization)
  Sender: FDA-Public Use
  Company Number: US-MERCK-0410USA01182

PATIENT
  Age: 70 Year
  Sex: Female

DRUGS (3)
  1. FOSAMAX [Suspect]
     Indication: OSTEOPOROSIS
     Route: 048
     Dates: start: 20020101, end: 20041001
  2. CELEBREX [Concomitant]
     Route: 065
     Dates: end: 20041001
  3. ACIPHEX [Concomitant]
     Indication: GASTROOESOPHAGEAL REFLUX DISEASE
     Route: 065

REACTIONS (6)
  - BLADDER CANCER [None]
  - EATING DISORDER [None]
  - ENTEROCOCCAL INFECTION [None]
  - NAUSEA [None]
  - OESOPHAGEAL ULCER [None]
  - VOMITING [None]
